FAERS Safety Report 22365151 (Version 3)
Quarter: 2023Q2

REPORT INFORMATION
  Report Type: Report from Study
  Country: JP (occurrence: JP)
  Receive Date: 20230525
  Receipt Date: 20230601
  Transmission Date: 20230721
  Serious: Yes (Death, Life-Threatening, Hospitalization, Other)
  Sender: FDA-Public Use
  Company Number: JP-TAKEDA-2023TJP006287

PATIENT
  Age: 59 Year
  Sex: Female
  Weight: 50.8 kg

DRUGS (2)
  1. BRIGATINIB [Suspect]
     Active Substance: BRIGATINIB
     Indication: Non-small cell lung cancer
     Dosage: 90 MILLIGRAM, QD
     Route: 065
     Dates: start: 20211222, end: 20211228
  2. BRIGATINIB [Suspect]
     Active Substance: BRIGATINIB
     Dosage: 180 MILLIGRAM, QD
     Route: 065
     Dates: start: 20211229, end: 20220105

REACTIONS (8)
  - Non-small cell lung cancer [Fatal]
  - Lymphangiosis carcinomatosa [Fatal]
  - Pleural effusion [Fatal]
  - Respiratory failure [Fatal]
  - Cholecystitis [Not Recovered/Not Resolved]
  - Intestinal metastasis [Not Recovered/Not Resolved]
  - Myelosuppression [Recovered/Resolved]
  - Abdominal pain [Not Recovered/Not Resolved]

NARRATIVE: CASE EVENT DATE: 20220113
